FAERS Safety Report 4762198-5 (Version None)
Quarter: 2005Q3

REPORT INFORMATION
  Report Type: 
  Country: None (occurrence: None)
  Receive Date: 20050906
  Receipt Date: 20050906
  Transmission Date: 20060218
  Serious: Yes (Hospitalization)
  Sender: FDA-Public Use
  Company Number: None

PATIENT
  Age: 49 Year
  Sex: Male
  Weight: 85.9 kg

DRUGS (8)
  1. LAMICTAL [Suspect]
     Indication: GRAND MAL CONVULSION
     Dosage: PO
     Route: 048
     Dates: start: 20050413, end: 20050425
  2. LEVOFLOXACIN [Concomitant]
  3. CARBAMAZEPINE [Concomitant]
  4. KETOROLAC TROMETHAMINE [Concomitant]
  5. AZITHROMYCIN [Concomitant]
  6. CEFTRIAXONE [Concomitant]
  7. IBUPROFEN [Concomitant]
  8. METHYLPREDNISOLONE [Concomitant]

REACTIONS (14)
  - BLOOD CREATININE INCREASED [None]
  - CHILLS [None]
  - CHROMATURIA [None]
  - DIALYSIS [None]
  - FLUID OVERLOAD [None]
  - HEADACHE [None]
  - PNEUMONIA [None]
  - PYREXIA [None]
  - RASH ERYTHEMATOUS [None]
  - RASH GENERALISED [None]
  - RASH MACULO-PAPULAR [None]
  - RESPIRATORY DISTRESS [None]
  - URINE ABNORMALITY [None]
  - URINE OUTPUT DECREASED [None]
